FAERS Safety Report 7363486-9 (Version None)
Quarter: 2011Q1

REPORT INFORMATION
  Report Type: 
  Country: None (occurrence: None)
  Receive Date: 20110321
  Receipt Date: 20110315
  Transmission Date: 20110831
  Serious: Yes (Hospitalization)
  Sender: FDA-Public Use
  Company Number: CA-B.I. PHARMACEUTICALS,INC./RIDGEFIELD-2011-CN-00235CN

PATIENT
  Age: 80 Year
  Sex: Female

DRUGS (18)
  1. AVALIDE [Concomitant]
  2. PANTOLOC [Concomitant]
  3. NITROGLYCERIN [Concomitant]
  4. ALENDRONATE [Concomitant]
  5. METFORMIN [Concomitant]
  6. ZOCOR [Concomitant]
  7. MAGNESIUM [Concomitant]
  8. FOSAMAX [Concomitant]
  9. SIMVASTATIN [Concomitant]
  10. TIAZAC [Concomitant]
  11. MIACALCIN [Concomitant]
     Route: 045
  12. GLUCONORM [Concomitant]
  13. ZOPICLONE [Concomitant]
  14. TAPAZOLE [Concomitant]
  15. ENSURE [Concomitant]
  16. DIAMICRON [Concomitant]
  17. PRADAXA [Suspect]
     Dosage: 220 MG
  18. TYLENOL (CAPLET) [Concomitant]

REACTIONS (1)
  - ACUTE MYOCARDIAL INFARCTION [None]
